FAERS Safety Report 15255862 (Version 1)
Quarter: 2018Q3

REPORT INFORMATION
  Report Type: Spontaneous
  Country: EG (occurrence: EG)
  Receive Date: 20180808
  Receipt Date: 20180808
  Transmission Date: 20181010
  Serious: Yes (Death, Other)
  Sender: FDA-Public Use
  Company Number: EG-SAKK-2018SA213116AA

PATIENT
  Age: 4 Year
  Sex: Male
  Weight: 11 kg

DRUGS (4)
  1. CALCIUM [Concomitant]
     Active Substance: CALCIUM
     Indication: BONE DISORDER
     Dosage: 25 MG
     Dates: start: 20150714
  2. CEREZYME [Suspect]
     Active Substance: IMIGLUCERASE
     Indication: GAUCHER^S DISEASE TYPE III
     Dosage: 5.45 (/KG) QOW
     Route: 041
     Dates: start: 20160510, end: 20170912
  3. VITAMIN D [Concomitant]
     Active Substance: CHOLECALCIFEROL
     Indication: BONE DISORDER
     Dosage: 500 UNK
     Dates: start: 20150714
  4. DEPAKENE [VALPROATE SODIUM] [Concomitant]
     Indication: EPILEPSY
     Dosage: 150 MG, BID
     Dates: start: 20160802

REACTIONS (2)
  - Status epilepticus [Fatal]
  - Pneumonia [Unknown]

NARRATIVE: CASE EVENT DATE: 20170921
